FAERS Safety Report 6478784-0 (Version None)
Quarter: 2009Q4

REPORT INFORMATION
  Report Type: 
  Country: None (occurrence: None)
  Receive Date: 20091207
  Receipt Date: 20091126
  Transmission Date: 20100525
  Serious: Yes (Death)
  Sender: FDA-Public Use
  Company Number: GB-GILEAD-E2B_00000476

PATIENT
  Sex: Female

DRUGS (14)
  1. AMBRISENTAN [Suspect]
     Indication: PULMONARY ARTERIAL HYPERTENSION
     Dosage: 5MG PER DAY
     Route: 048
     Dates: start: 20090716, end: 20090923
  2. AMIODARONE HCL [Concomitant]
     Route: 065
  3. CITALOPRAM HYDROBROMIDE [Concomitant]
     Route: 065
  4. FUROSEMIDE [Concomitant]
     Route: 065
  5. DIGOXIN [Concomitant]
     Route: 065
  6. PARACETAMOL [Concomitant]
     Route: 065
  7. CODEINE PHOSPHATE [Concomitant]
     Route: 065
  8. SPIRONOLACTONE [Concomitant]
  9. PANTOPRAZOLE [Concomitant]
  10. ALENDRONATE SODIUM [Concomitant]
  11. SERETIDE [Concomitant]
  12. FERROUS SULFATE TAB [Concomitant]
  13. ALLOPURINOL [Concomitant]
  14. OXYGEN [Concomitant]
     Route: 065

REACTIONS (2)
  - HAEMOPTYSIS [None]
  - PULMONARY HYPERTENSION [None]
